FAERS Safety Report 9269766 (Version 4)
Quarter: 2013Q4

REPORT INFORMATION
  Report Type: Report from Study
  Country: IT (occurrence: IT)
  Receive Date: 20130503
  Receipt Date: 20131104
  Transmission Date: 20140711
  Serious: Yes (Life-Threatening, Hospitalization)
  Sender: FDA-Public Use
  Company Number: IT-ELI_LILLY_AND_COMPANY-IT201304008754

PATIENT
  Age: 72 Year
  Sex: 0

DRUGS (1)
  1. GEMCITABINE HYDROCHLORIDE [Suspect]
     Dosage: 2500 MG, UNK
     Dates: start: 20130423

REACTIONS (6)
  - Anaemia [Recovered/Resolved]
  - Atrial fibrillation [Recovered/Resolved]
  - Acute coronary syndrome [Recovered/Resolved]
  - Renal function test abnormal [Recovered/Resolved]
  - Myocardial infarction [Recovered/Resolved]
  - Cardiac failure [Recovered/Resolved]
